FAERS Safety Report 10365809 (Version 1)
Quarter: 2014Q1

REPORT INFORMATION
  Report Type: Spontaneous
  Country: US (occurrence: None)
  Receive Date: 20140306
  Receipt Date: 20140306
  Transmission Date: 20141002
  Serious: Yes (Other)
  Sender: FDA-Public Use
  Company Number: 163-21880-13091990

PATIENT
  Age: 81 Year
  Sex: Male
  Weight: 68.04 kg

DRUGS (9)
  1. REVLIMID [Suspect]
     Indication: PLASMA CELL MYELOMA
     Dosage: 28 IN 28 D, PO
     Route: 048
     Dates: start: 20130905
  2. DEXAMETHASONE (UNKNOWN) [Concomitant]
  3. ASPIRIN (ACETYLSALICYLIC ACID) (UNKNOWN) (ACETYLSALICYLIC ACID) [Concomitant]
  4. FAMOTIDINE (UNKNOWN) [Concomitant]
  5. ATIVAN (LORAZEPAM) (UNKNOWN) [Concomitant]
  6. ACYCLOVIR (ACICLOVIR) (UNKNOWN) [Concomitant]
  7. GABAPENTIN (UNKNOWN) [Concomitant]
  8. PROTONIX (UNKNOWN) [Concomitant]
  9. CYMBALTA [Concomitant]

REACTIONS (4)
  - Blood pressure fluctuation [None]
  - Dyspnoea [None]
  - Nausea [None]
  - Diarrhoea [None]
